FAERS Safety Report 5100176-7 (Version None)
Quarter: 2006Q3

REPORT INFORMATION
  Report Type: 
  Country: None (occurrence: None)
  Receive Date: 20060908
  Receipt Date: 20060829
  Transmission Date: 20061208
  Serious: Yes (Other)
  Sender: FDA-Public Use
  Company Number: ZA-ABBOTT-06P-143-0342731-00

PATIENT
  Age: 15 Year
  Sex: Female

DRUGS (4)
  1. EPILIM TABLETS [Suspect]
     Indication: CONVULSION
     Route: 048
     Dates: start: 20060501
  2. LAMOTRIGINE [Suspect]
     Indication: CONVULSION
     Route: 048
     Dates: start: 20060501
  3. SUPRAGESIC [Suspect]
     Indication: HEADACHE
     Route: 048
     Dates: start: 20060816, end: 20060816
  4. FLUSTAT [Concomitant]
     Indication: INFLUENZA
     Route: 048
     Dates: start: 20060816

REACTIONS (7)
  - CONVERSION DISORDER [None]
  - CONVULSION [None]
  - DISORIENTATION [None]
  - DRUG INEFFECTIVE [None]
  - HALLUCINATION [None]
  - HEADACHE [None]
  - SPEECH DISORDER [None]
